FAERS Safety Report 6783342-4 (Version None)
Quarter: 2010Q2

REPORT INFORMATION
  Report Type: 
  Country: None (occurrence: None)
  Receive Date: 20100622
  Receipt Date: 20100615
  Transmission Date: 20101027
  Serious: Yes (Life-Threatening, Hospitalization)
  Sender: FDA-Public Use
  Company Number: FR-KINGPHARMUSA00001-K201000510

PATIENT
  Age: 69 Year
  Sex: Male

DRUGS (9)
  1. ALTACE [Suspect]
     Indication: HYPERTENSION
     Dosage: 2.5 MG, QD
     Route: 048
     Dates: start: 20060101, end: 20100401
  2. FELODIPINE [Suspect]
     Indication: HYPERTENSION
     Dosage: 2.5 MG, QD
     Route: 048
     Dates: start: 20060101, end: 20100401
  3. SPIRONOLACTONE [Suspect]
     Indication: OEDEMA PERIPHERAL
     Dosage: 50 MG, QD
     Route: 048
     Dates: start: 20100325, end: 20100401
  4. ASPIRIN [Concomitant]
     Dosage: UNK
     Dates: start: 20060101
  5. METOPROLOL TARTRATE [Concomitant]
     Dosage: UNK
     Dates: start: 20060101
  6. ARELIX [Concomitant]
     Dosage: UNK
     Dates: start: 20060101
  7. STALEVO 100 [Concomitant]
     Dosage: UNK
     Dates: start: 20070101
  8. CARBIDOPA + LEVODOPA [Concomitant]
     Dosage: UNK
     Dates: start: 20070101
  9. SELEGILIN [Concomitant]
     Dosage: UNK
     Dates: start: 20070101

REACTIONS (7)
  - BLOOD CREATININE INCREASED [None]
  - BLOOD SODIUM DECREASED [None]
  - GENERAL PHYSICAL HEALTH DETERIORATION [None]
  - HYPERKALAEMIA [None]
  - MUSCULOSKELETAL STIFFNESS [None]
  - PARKINSON'S DISEASE [None]
  - RENAL FAILURE [None]
